FAERS Safety Report 6005509-5 (Version None)
Quarter: 2008Q4

REPORT INFORMATION
  Report Type: 
  Country: None (occurrence: None)
  Receive Date: 20081217
  Receipt Date: 20080909
  Transmission Date: 20090506
  Serious: No
  Sender: FDA-Public Use
  Company Number: A0746579A

PATIENT
  Age: 43 Year
  Sex: Male

DRUGS (3)
  1. LEXIVA [Suspect]
     Indication: HIV INFECTION
     Dosage: 700MG TWICE PER DAY
     Route: 048
     Dates: start: 20080825, end: 20080906
  2. NORVIR [Concomitant]
  3. TRUVADA [Concomitant]

REACTIONS (1)
  - RASH [None]
